FAERS Safety Report 12274656 (Version 1)
Quarter: 2016Q2

REPORT INFORMATION
  Report Type: Spontaneous
  Country: US (occurrence: US)
  Receive Date: 20160415
  Receipt Date: 20160415
  Transmission Date: 20160815
  Serious: No
  Sender: FDA-Public Use
  Company Number: US-ALLERGAN-1507146US

PATIENT
  Sex: Female
  Weight: 58.96 kg

DRUGS (1)
  1. LATISSE [Suspect]
     Active Substance: BIMATOPROST
     Indication: TRICHORRHEXIS
     Dosage: UNK
     Route: 061
     Dates: start: 201011, end: 201205

REACTIONS (1)
  - Trichorrhexis [Unknown]
